FAERS Safety Report 4446123-2 (Version None)
Quarter: 2004Q3

REPORT INFORMATION
  Report Type: 
  Country: None (occurrence: None)
  Receive Date: 20040903
  Receipt Date: 20040823
  Transmission Date: 20050211
  Serious: Yes (Hospitalization)
  Sender: FDA-Public Use
  Company Number: 2004058508

PATIENT
  Age: 73 Year
  Sex: Female
  Weight: 55.7924 kg

DRUGS (2)
  1. LIPITOR [Suspect]
     Indication: ATHEROSCLEROSIS
     Dosage: 10 MG (10 MG, 1 IN 1 D), ORAL
     Route: 048
  2. LEVOTHYROXINE SODIUM [Concomitant]

REACTIONS (7)
  - CHAPPED LIPS [None]
  - CHEILITIS [None]
  - DRUG INEFFECTIVE [None]
  - DRY MOUTH [None]
  - LIP DISCOLOURATION [None]
  - ORAL PAIN [None]
  - SWELLING FACE [None]
